FAERS Safety Report 15044094 (Version 2)
Quarter: 2018Q3

REPORT INFORMATION
  Report Type: Spontaneous
  Country: GB (occurrence: GB)
  Receive Date: 20180621
  Receipt Date: 20180716
  Transmission Date: 20181010
  Serious: Yes (Hospitalization, Other)
  Sender: FDA-Public Use
  Company Number: GB-VERTEX PHARMACEUTICALS-2018-004139

PATIENT
  Sex: Male

DRUGS (15)
  1. FUBININ [Concomitant]
  2. MENOLON [Concomitant]
  3. CREON [Concomitant]
     Active Substance: PANCRELIPASE AMYLASE\PANCRELIPASE LIPASE\PANCRELIPASE PROTEASE
  4. KALYDECO [Suspect]
     Active Substance: IVACAFTOR
     Indication: CYSTIC FIBROSIS
     Dosage: 150 MG, BID
     Route: 048
     Dates: start: 20150814
  5. DNASE [Concomitant]
     Active Substance: DEOXYRIBONUCLIEC ACID
     Route: 055
  6. MOVICOL [Concomitant]
     Active Substance: POLYETHYLENE GLYCOL 3350\POTASSIUM CHLORIDE\SODIUM BICARBONATE\SODIUM CHLORIDE
  7. COLOMYCIN                          /00013203/ [Concomitant]
     Active Substance: COLISTIN SULFATE
     Route: 055
  8. VITAMIN D                          /00107901/ [Concomitant]
     Active Substance: ERGOCALCIFEROL
  9. RENOLOG [Concomitant]
  10. VITAMIN E                          /00110501/ [Concomitant]
     Active Substance: TOCOPHEROL
  11. LOSEC [Concomitant]
     Active Substance: OMEPRAZOLE
  12. DUOCAL [Concomitant]
  13. VITAMIN K [Concomitant]
     Active Substance: PHYTONADIONE
  14. MAXIJUL [Concomitant]
  15. NEUSAL [Concomitant]
     Route: 055

REACTIONS (2)
  - Renal impairment [Unknown]
  - Hospice care [Not Recovered/Not Resolved]

NARRATIVE: CASE EVENT DATE: 2018
